FAERS Safety Report 23853563 (Version 1)
Quarter: 2024Q2

REPORT INFORMATION
  Report Type: Spontaneous
  Country: US (occurrence: US)
  Receive Date: 20240514
  Receipt Date: 20240514
  Transmission Date: 20240715
  Serious: Yes (Other)
  Sender: FDA-Public Use
  Company Number: US-PHARMING-PHAUS2024000376

PATIENT

DRUGS (1)
  1. RUCONEST [Suspect]
     Active Substance: CONESTAT ALFA
     Indication: Hereditary angioedema
     Dosage: 4200 IU, PRN
     Route: 042
     Dates: start: 202003

REACTIONS (6)
  - Internal haemorrhage [Unknown]
  - Seizure [Unknown]
  - Weight decreased [Unknown]
  - Fall [Unknown]
  - Vascular access site complication [Unknown]
  - Condition aggravated [Unknown]
